FAERS Safety Report 5943218-9 (Version None)
Quarter: 2008Q4

REPORT INFORMATION
  Report Type: 
  Country: None (occurrence: None)
  Receive Date: 20081106
  Receipt Date: 20081031
  Transmission Date: 20090506
  Serious: Yes (Other)
  Sender: FDA-Public Use
  Company Number: B0544866A

PATIENT
  Age: 46 Year
  Sex: Male

DRUGS (3)
  1. KIVEXA [Suspect]
     Indication: HIV INFECTION
     Route: 048
     Dates: start: 20070116, end: 20070117
  2. COMBIVIR [Suspect]
     Indication: HIV INFECTION
     Route: 048
     Dates: start: 20070117
  3. SUSTIVA [Suspect]
     Indication: HIV INFECTION
     Route: 048
     Dates: start: 20070116

REACTIONS (4)
  - GASTROINTESTINAL DISORDER [None]
  - HAEMATOTOXICITY [None]
  - MITOCHONDRIAL CYTOPATHY [None]
  - MYOSITIS [None]
